FAERS Safety Report 8369250-6 (Version None)
Quarter: 2012Q2

REPORT INFORMATION
  Report Type: 
  Country: None (occurrence: None)
  Receive Date: 20120518
  Receipt Date: 20120509
  Transmission Date: 20120825
  Serious: Yes (Hospitalization, Other)
  Sender: FDA-Public Use
  Company Number: US-ELI_LILLY_AND_COMPANY-US201112001407

PATIENT
  Sex: Female
  Weight: 44.9 kg

DRUGS (4)
  1. FORTEO [Suspect]
     Dosage: 20 UG, QD
     Dates: end: 20120215
  2. FORTEO [Suspect]
     Dosage: 20 UG, QD
     Route: 065
     Dates: start: 20120428
  3. COUMADIN [Concomitant]
     Indication: COAGULOPATHY
     Dosage: UNK
     Dates: end: 20120201
  4. FORTEO [Suspect]
     Indication: OSTEOPOROSIS
     Dosage: 20 UG, QD
     Dates: start: 20111122

REACTIONS (6)
  - MUSCLE SPASMS [None]
  - OSTEOARTHRITIS [None]
  - ARTHRALGIA [None]
  - SPINAL FRACTURE [None]
  - PAIN IN EXTREMITY [None]
  - GAIT DISTURBANCE [None]
